FAERS Safety Report 7357180-8 (Version None)
Quarter: 2011Q1

REPORT INFORMATION
  Report Type: 
  Country: None (occurrence: None)
  Receive Date: 20110317
  Receipt Date: 20110314
  Transmission Date: 20110831
  Serious: No
  Sender: FDA-Public Use
  Company Number: US-PFIZER INC-2011056298

PATIENT
  Sex: Male
  Weight: 81.633 kg

DRUGS (1)
  1. ZITHROMAX [Suspect]
     Dosage: 250 MG, 1X/DAY
     Route: 048
     Dates: start: 20110307, end: 20110311

REACTIONS (3)
  - DIZZINESS [None]
  - VERTIGO [None]
  - HEADACHE [None]
